FAERS Safety Report 5796166-1 (Version None)
Quarter: 2008Q3

REPORT INFORMATION
  Report Type: 
  Country: None (occurrence: None)
  Receive Date: 20080701
  Receipt Date: 20080616
  Transmission Date: 20090109
  Serious: Yes (Life-Threatening, Hospitalization)
  Sender: FDA-Public Use
  Company Number: DE-ELI_LILLY_AND_COMPANY-DE200806001636

PATIENT
  Sex: Female

DRUGS (3)
  1. GEMZAR [Suspect]
     Indication: PANCREATIC CARCINOMA
     Dosage: 2060 MG, UNKNOWN
     Route: 042
     Dates: start: 20080410, end: 20080521
  2. KEVATRIL [Concomitant]
     Dosage: 1 MG, UNKNOWN
     Route: 042
  3. VANCOMYCIN [Concomitant]
     Dates: start: 20080501

REACTIONS (4)
  - DYSPNOEA [None]
  - INTERSTITIAL LUNG DISEASE [None]
  - PULMONARY EMBOLISM [None]
  - PYREXIA [None]
